FAERS Safety Report 9170498 (Version 1)
Quarter: 2013Q1

REPORT INFORMATION
  Report Type: Spontaneous
  Country: US (occurrence: None)
  Receive Date: 20130315
  Receipt Date: 20130315
  Transmission Date: 20140127
  Serious: Yes (Other)
  Sender: FDA-Public Use
  Company Number: None

PATIENT
  Age: 47 Year
  Sex: Female
  Weight: 53.52 kg

DRUGS (7)
  1. COPEGUS [Suspect]
     Indication: HEPATITIS C
     Dosage: 2 TABS QAM 3 QPM;, PO
     Route: 048
     Dates: start: 20121226, end: 20130307
  2. INCIVEK [Suspect]
     Route: 048
  3. PEGASYS [Suspect]
     Route: 058
     Dates: start: 20120126, end: 20130307
  4. IBUPROFEN [Concomitant]
  5. LORATADINE [Concomitant]
  6. OMEGA 3 [Concomitant]
  7. OMEPRAZOLE [Concomitant]

REACTIONS (4)
  - VIIth nerve paralysis [None]
  - Eye movement disorder [None]
  - Drooling [None]
  - VIIth nerve paralysis [None]
